FAERS Safety Report 9911649 (Version 1)
Quarter: 2014Q1

REPORT INFORMATION
  Report Type: Spontaneous
  Country: IT (occurrence: IT)
  Receive Date: 20140219
  Receipt Date: 20140219
  Transmission Date: 20141002
  Serious: Yes (Life-Threatening)
  Sender: FDA-Public Use
  Company Number: PHHY2014IT015767

PATIENT
  Sex: Female

DRUGS (9)
  1. AMIODARONE [Suspect]
     Indication: ATRIAL FIBRILLATION
     Dosage: 200 MG, QD
     Route: 048
     Dates: start: 20140121
  2. CEFTRIAXONE [Suspect]
     Indication: RESPIRATORY TRACT INFECTION
     Dosage: 1 G, QD
     Route: 030
     Dates: start: 20140114
  3. COUMADIN [Suspect]
     Indication: CEREBROVASCULAR ACCIDENT PROPHYLAXIS
     Dosage: 16.25 MG, QW
     Route: 048
     Dates: start: 19980101, end: 20140204
  4. LANOXIN [Concomitant]
  5. LUVION [Concomitant]
  6. OMEPRAZOLE [Concomitant]
     Dosage: 20 MG, UNK
     Route: 048
  7. RAMIPRIL [Concomitant]
     Dosage: 5 MG, UNK
     Route: 048
  8. BISOPROLOL [Concomitant]
     Dosage: 2.5 MG, UNK
     Route: 048
  9. FUROSEMIDE [Concomitant]
     Dosage: 25 MG, UNK
     Route: 048

REACTIONS (1)
  - International normalised ratio increased [Recovered/Resolved]
